FAERS Safety Report 4990105-9 (Version None)
Quarter: 2006Q2

REPORT INFORMATION
  Report Type: 
  Country: None (occurrence: None)
  Receive Date: 20060503
  Receipt Date: 20020909
  Transmission Date: 20061013
  Serious: Yes (Death, Hospitalization, Disabling)
  Sender: FDA-Public Use
  Company Number: US-MERCK-0209USA01335

PATIENT
  Age: 74 Year
  Sex: Male
  Weight: 68 kg

DRUGS (20)
  1. VIOXX [Suspect]
     Indication: ARTHRITIS
     Route: 048
     Dates: start: 20000106, end: 20000101
  2. VIOXX [Suspect]
     Route: 048
     Dates: start: 20000101, end: 20000909
  3. VIOXX [Suspect]
     Route: 048
     Dates: start: 19990101
  4. VIOXX [Suspect]
     Indication: NON-CARDIAC CHEST PAIN
     Route: 048
     Dates: start: 20000106, end: 20000101
  5. VIOXX [Suspect]
     Route: 048
     Dates: start: 20000101, end: 20000909
  6. VIOXX [Suspect]
     Route: 048
     Dates: start: 19990101
  7. SYNTHROID [Concomitant]
     Indication: HYPOTHYROIDISM
     Route: 065
     Dates: start: 19981201, end: 19990101
  8. SYNTHROID [Concomitant]
     Route: 065
     Dates: start: 19990101, end: 19991101
  9. SYNTHROID [Concomitant]
     Route: 065
     Dates: start: 20000701
  10. SYNTHROID [Concomitant]
     Route: 065
     Dates: start: 20000101, end: 20000401
  11. PLAVIX [Concomitant]
     Route: 065
     Dates: start: 19990101
  12. ZOCOR [Concomitant]
     Indication: PROPHYLAXIS
     Route: 048
     Dates: start: 19990101
  13. LEVOTHROID [Concomitant]
     Route: 065
     Dates: start: 19991101, end: 20000701
  14. IMDUR [Concomitant]
     Route: 065
     Dates: start: 19990101, end: 20000701
  15. NITROGLYCERIN [Concomitant]
     Route: 065
     Dates: start: 19991101
  16. VASOTEC [Concomitant]
     Route: 048
     Dates: start: 20000101
  17. MYLICON [Concomitant]
     Indication: FLATULENCE
     Route: 048
     Dates: start: 20000101
  18. ASPIRIN [Concomitant]
     Route: 065
  19. DARVOCET [Concomitant]
     Route: 065
  20. ZESTRIL [Concomitant]
     Route: 065

REACTIONS (12)
  - ACCIDENTAL OVERDOSE [None]
  - ACUTE MYOCARDIAL INFARCTION [None]
  - ANGINA PECTORIS [None]
  - CARDIAC FAILURE CONGESTIVE [None]
  - CARDIOGENIC SHOCK [None]
  - CAROTID ARTERY STENOSIS [None]
  - CHRONIC OBSTRUCTIVE PULMONARY DISEASE [None]
  - CORONARY ARTERY DISEASE [None]
  - HEART RATE IRREGULAR [None]
  - PALPITATIONS [None]
  - POSTOPERATIVE WOUND INFECTION [None]
  - RENAL FAILURE [None]
